FAERS Safety Report 16121654 (Version 1)
Quarter: 2019Q1

REPORT INFORMATION
  Report Type: Spontaneous
  Country: TR (occurrence: TR)
  Receive Date: 20190327
  Receipt Date: 20190327
  Transmission Date: 20190418
  Serious: Yes (Hospitalization)
  Sender: FDA-Public Use
  Company Number: TR-ABBVIE-19P-161-2721770-00

PATIENT
  Age: 76 Year
  Sex: Female

DRUGS (4)
  1. FLUDEX-SR [Concomitant]
     Active Substance: INDAPAMIDE
     Indication: HYPERTENSION
  2. TARKA [Suspect]
     Active Substance: TRANDOLAPRIL\VERAPAMIL HYDROCHLORIDE
     Indication: HYPERTENSION
     Dosage: DAILY DOSE UNKNOWN, FORM STRENGTH: 180/2 MILLIGRAM
     Route: 065
     Dates: start: 2014, end: 20190325
  3. ASPIRIN. [Concomitant]
     Active Substance: ASPIRIN
     Indication: PRODUCT USED FOR UNKNOWN INDICATION
  4. KINZY [Concomitant]
     Indication: POLLAKIURIA

REACTIONS (2)
  - Heart rate decreased [Not Recovered/Not Resolved]
  - Atrioventricular block [Not Recovered/Not Resolved]

NARRATIVE: CASE EVENT DATE: 20190325
